FAERS Safety Report 15956429 (Version 2)
Quarter: 2019Q2

REPORT INFORMATION
  Report Type: Spontaneous
  Country: US (occurrence: US)
  Receive Date: 20190213
  Receipt Date: 20190424
  Transmission Date: 20190711
  Serious: Yes (Hospitalization)
  Sender: FDA-Public Use
  Company Number: US-PFIZER INC-2019046003

PATIENT
  Age: 51 Year
  Sex: Female
  Weight: 52.15 kg

DRUGS (8)
  1. LYRICA [Suspect]
     Active Substance: PREGABALIN
     Indication: HERPES ZOSTER
     Dosage: 75 MG, 1X/DAY (AT NIGHT)
     Route: 048
     Dates: start: 201811, end: 20181213
  2. LYRICA [Suspect]
     Active Substance: PREGABALIN
     Dosage: 30 MG, DAILY
     Dates: start: 201812
  3. LYRICA [Suspect]
     Active Substance: PREGABALIN
     Dosage: 30 MG, UNK
     Dates: start: 201902
  4. LYRICA [Suspect]
     Active Substance: PREGABALIN
     Dosage: 50 MG, UNK
     Route: 048
     Dates: start: 201812
  5. LYRICA [Suspect]
     Active Substance: PREGABALIN
     Dosage: 10 MG, UNK
     Dates: start: 201902
  6. LYRICA [Suspect]
     Active Substance: PREGABALIN
     Dosage: 150 MG, SINGLE
     Dates: start: 20190129
  7. LYRICA [Suspect]
     Active Substance: PREGABALIN
     Dosage: 40 MG, UNK
     Route: 048
     Dates: start: 201902
  8. LYRICA [Suspect]
     Active Substance: PREGABALIN
     Dosage: 20 MG, UNK
     Dates: start: 201902

REACTIONS (9)
  - Dry mouth [Recovered/Resolved]
  - Dizziness [Recovered/Resolved]
  - Palpitations [Recovered/Resolved]
  - Hyperhidrosis [Recovered/Resolved]
  - Product use issue [Unknown]
  - Anxiety [Recovered/Resolved]
  - Anger [Recovered/Resolved]
  - Wrong dose [Unknown]
  - Memory impairment [Recovered/Resolved]

NARRATIVE: CASE EVENT DATE: 201811
